FAERS Safety Report 10589293 (Version 1)
Quarter: 2014Q4

REPORT INFORMATION
  Report Type: Spontaneous
  Country: US (occurrence: US)
  Receive Date: 20141118
  Receipt Date: 20141118
  Transmission Date: 20150529
  Serious: Yes (Other)
  Sender: FDA-Public Use
  Company Number: US-AUROBINDO-AUR-APL-2014-11995

PATIENT
  Age: 30 Year
  Sex: Male

DRUGS (4)
  1. NAPROXEN. [Suspect]
     Active Substance: NAPROXEN
     Indication: JOINT INJURY
     Dosage: UNK
     Route: 065
  2. CALCIUM CARBONATE. [Suspect]
     Active Substance: CALCIUM CARBONATE
     Indication: GASTROOESOPHAGEAL REFLUX DISEASE
     Dosage: 7 G, UNK
     Route: 065
  3. CLINDAMYCIN [Suspect]
     Active Substance: CLINDAMYCIN\CLINDAMYCIN PHOSPHATE
     Indication: JOINT INJURY
     Dosage: UNK
     Route: 065
  4. CALCIUM CARBONATE. [Suspect]
     Active Substance: CALCIUM CARBONATE
     Dosage: 14 G, DAILY
     Route: 065

REACTIONS (16)
  - Hypercalcaemia [Recovered/Resolved]
  - Milk-alkali syndrome [Recovered/Resolved]
  - Acute kidney injury [Recovered/Resolved]
  - Constipation [Unknown]
  - Protein total increased [Unknown]
  - Normochromic normocytic anaemia [Unknown]
  - Nausea [Unknown]
  - Thirst [Unknown]
  - Dyspepsia [Unknown]
  - Vomiting [Unknown]
  - Blood pressure increased [Unknown]
  - Blood parathyroid hormone decreased [Unknown]
  - Hypovolaemia [Recovered/Resolved]
  - Decreased appetite [Unknown]
  - Metabolic alkalosis [Recovered/Resolved]
  - Irritability [Unknown]
